FAERS Safety Report 18717360 (Version 1)
Quarter: 2021Q1

REPORT INFORMATION
  Report Type: Spontaneous
  Country: US (occurrence: US)
  Receive Date: 20210108
  Receipt Date: 20210108
  Transmission Date: 20210419
  Serious: Yes (Other)
  Sender: FDA-Public Use
  Company Number: US-AMNEAL PHARMACEUTICALS-2020-AMRX-03871

PATIENT
  Age: 15 Year
  Sex: Male
  Weight: 42.18 kg

DRUGS (2)
  1. VIGABATRIN. [Suspect]
     Active Substance: VIGABATRIN
     Dosage: 100 MILLIGRAM, 2 /DAY
     Route: 048
     Dates: start: 20201213
  2. VIGABATRIN. [Suspect]
     Active Substance: VIGABATRIN
     Indication: EPILEPSY
     Dosage: 1000 MILLIGRAM, 2 /DAY
     Route: 048
     Dates: start: 20190924, end: 20201130

REACTIONS (3)
  - Product dose omission issue [Unknown]
  - Seizure [Unknown]
  - Underdose [Unknown]

NARRATIVE: CASE EVENT DATE: 20201130
